FAERS Safety Report 24266866 (Version 3)
Quarter: 2025Q3

REPORT INFORMATION
  Report Type: Report from Study
  Country: IL (occurrence: IL)
  Receive Date: 20240830
  Receipt Date: 20250716
  Transmission Date: 20251020
  Serious: Yes (Other)
  Sender: TAKEDA
  Company Number: IL-TAKEDA-2023TUS097153

PATIENT
  Age: 58 Year
  Sex: Male

DRUGS (12)
  1. VELAGLUCERASE ALFA [Suspect]
     Active Substance: VELAGLUCERASE ALFA
     Indication: Gaucher^s disease
     Dosage: 3 DOSAGE FORM, Q2WEEKS
  2. VELAGLUCERASE ALFA [Suspect]
     Active Substance: VELAGLUCERASE ALFA
  3. VELAGLUCERASE ALFA [Suspect]
     Active Substance: VELAGLUCERASE ALFA
  4. Procor [Concomitant]
  5. AUGMENTIN [Concomitant]
     Active Substance: AMOXICILLIN\CLAVULANATE POTASSIUM
  6. RAMIPRIL [Concomitant]
     Active Substance: RAMIPRIL
  7. HALOPERIDOL [Concomitant]
     Active Substance: HALOPERIDOL
  8. ALDACTONE [Concomitant]
     Active Substance: SPIRONOLACTONE
  9. ASPIRIN [Concomitant]
     Active Substance: ASPIRIN
  10. ATORVASTATIN [Concomitant]
     Active Substance: ATORVASTATIN
  11. ESOMEPRAZOLE [Concomitant]
     Active Substance: ESOMEPRAZOLE
  12. TEGRETOL XR [Concomitant]
     Active Substance: CARBAMAZEPINE

REACTIONS (2)
  - Thrombosis [Unknown]
  - COVID-19 [Unknown]
